FAERS Safety Report 9933166 (Version 1)
Quarter: 2014Q1

REPORT INFORMATION
  Report Type: Spontaneous
  Country: ES (occurrence: ES)
  Receive Date: 20140228
  Receipt Date: 20140228
  Transmission Date: 20141002
  Serious: Yes (Hospitalization, Other)
  Sender: FDA-Public Use
  Company Number: ES-OTSUKA-EU-2014-10050

PATIENT
  Sex: 0

DRUGS (2)
  1. PLETAL [Suspect]
     Indication: PERIPHERAL ARTERIAL OCCLUSIVE DISEASE
     Dosage: 100 MG MILLIGRAM(S), UNKNOWN
     Route: 048
     Dates: start: 20130206, end: 20140129
  2. PLAVIX [Interacting]
     Indication: PERIPHERAL ARTERIAL OCCLUSIVE DISEASE
     Dosage: 75 MG MILLIGRAM(S), QD
     Route: 048
     Dates: start: 20130206

REACTIONS (5)
  - Abdominal wall haematoma [Recovered/Resolved]
  - Thrombocytopenia [Not Recovered/Not Resolved]
  - Haematoma [Unknown]
  - Haemorrhage [Unknown]
  - Anaemia [Unknown]
